FAERS Safety Report 23460630 (Version 3)
Quarter: 2024Q1

REPORT INFORMATION
  Report Type: Spontaneous
  Country: US (occurrence: US)
  Receive Date: 20240131
  Receipt Date: 20240306
  Transmission Date: 20240409
  Serious: Yes (Other)
  Sender: FDA-Public Use
  Company Number: US-SA-SAC20240123000465

PATIENT
  Age: 31 Year
  Sex: Male

DRUGS (1)
  1. DUPIXENT [Suspect]
     Active Substance: DUPILUMAB
     Indication: Eosinophilic oesophagitis
     Dosage: 300 MG, QW
     Route: 058
     Dates: start: 20231129

REACTIONS (8)
  - Loss of consciousness [Unknown]
  - Stress [Unknown]
  - Eosinophilic oesophagitis [Recovered/Resolved]
  - Condition aggravated [Recovered/Resolved]
  - Oesophageal pain [Recovered/Resolved]
  - Nausea [Unknown]
  - Burning sensation [Unknown]
  - Discomfort [Unknown]

NARRATIVE: CASE EVENT DATE: 20230101
